FAERS Safety Report 26077254 (Version 2)
Quarter: 2025Q4

REPORT INFORMATION
  Report Type: Spontaneous
  Country: US (occurrence: US)
  Receive Date: 20251121
  Receipt Date: 20251229
  Transmission Date: 20260117
  Serious: Yes (Hospitalization, Other)
  Sender: NEUROCRINE BIOSCIENCES
  Company Number: US-NEUROCRINE BIOSCIENCES INC.-2025NBI15225

PATIENT
  Sex: Male

DRUGS (3)
  1. INGREZZA [Suspect]
     Active Substance: VALBENAZINE DITOSYLATE
     Indication: Tardive dyskinesia
     Dosage: 80 MILLIGRAM, QD
     Route: 065
  2. INGREZZA [Suspect]
     Active Substance: VALBENAZINE DITOSYLATE
     Dosage: 40 MILLIGRAM, UNKNOWN
     Route: 065
  3. RISPERDAL [Concomitant]
     Active Substance: RISPERIDONE
     Indication: Bipolar disorder

REACTIONS (3)
  - Motor dysfunction [Recovering/Resolving]
  - Parkinson^s disease [Unknown]
  - Muscular weakness [Recovering/Resolving]
